FAERS Safety Report 21774324 (Version 2)
Quarter: 2023Q2

REPORT INFORMATION
  Report Type: Report from Study
  Country: BR (occurrence: BR)
  Receive Date: 20221224
  Receipt Date: 20230517
  Transmission Date: 20230721
  Serious: Yes (Hospitalization)
  Sender: FDA-Public Use
  Company Number: BR-CELLTRION INC.-2022BR021543

PATIENT

DRUGS (2)
  1. INFLIXIMAB [Suspect]
     Active Substance: INFLIXIMAB
     Indication: Arthritis
     Dosage: EVERY 2 MONTHS
     Route: 042
  2. INFLIXIMAB [Suspect]
     Active Substance: INFLIXIMAB
     Dosage: EVERY 2 MONTHS
     Route: 042
     Dates: start: 20230414

REACTIONS (3)
  - Cholelithiasis [Recovered/Resolved]
  - Muscular weakness [Recovered/Resolved]
  - Intentional dose omission [Unknown]

NARRATIVE: CASE EVENT DATE: 20221205
